FAERS Safety Report 9312613 (Version 1)
Quarter: 2013Q2

REPORT INFORMATION
  Report Type: Spontaneous
  Country: IT (occurrence: IT)
  Receive Date: 20130528
  Receipt Date: 20130528
  Transmission Date: 20140414
  Serious: Yes (Hospitalization)
  Sender: FDA-Public Use
  Company Number: IT-GLAXOSMITHKLINE-B0894003A

PATIENT
  Age: 7 Year
  Sex: Female

DRUGS (3)
  1. FLIXOTIDE [Suspect]
     Indication: ASTHMA
     Dosage: 125MCG PER DAY
     Route: 055
     Dates: start: 20121001, end: 20121110
  2. BRONCHO MUNAL [Suspect]
     Indication: RESPIRATORY TRACT INFECTION
     Dosage: 3.5MG PER DAY
     Route: 048
     Dates: start: 20121001, end: 20121110
  3. SINGULAIR [Suspect]
     Indication: ASTHMA
     Dosage: 4MG PER DAY
     Route: 048
     Dates: start: 20121001, end: 20121130

REACTIONS (4)
  - Chest pain [Recovered/Resolved]
  - Insomnia [Recovered/Resolved]
  - Psychomotor hyperactivity [Recovered/Resolved]
  - Staring [Recovered/Resolved]
